FAERS Safety Report 6132284-6 (Version None)
Quarter: 2009Q1

REPORT INFORMATION
  Report Type: 
  Country: None (occurrence: None)
  Receive Date: 20090320
  Receipt Date: 20081124
  Transmission Date: 20090719
  Serious: No
  Sender: FDA-Public Use
  Company Number: US-CVT-080101

PATIENT
  Age: 80 Year
  Sex: Female
  Weight: 70.7 kg

DRUGS (18)
  1. RANEXA [Suspect]
     Indication: ANGINA PECTORIS
     Dosage: 500 MG, BID, ORAL; 500 MG, QD, ORAL; 500 BID, ORAL
     Route: 048
     Dates: start: 20081105, end: 20081123
  2. RANEXA [Suspect]
     Indication: ANGINA PECTORIS
     Dosage: 500 MG, BID, ORAL; 500 MG, QD, ORAL; 500 BID, ORAL
     Route: 048
     Dates: start: 20081124, end: 20081125
  3. RANEXA [Suspect]
     Indication: ANGINA PECTORIS
     Dosage: 500 MG, BID, ORAL; 500 MG, QD, ORAL; 500 BID, ORAL
     Route: 048
     Dates: start: 20081126
  4. DYNACIRC [Concomitant]
  5. ASPIRIN [Concomitant]
  6. . [Concomitant]
  7. NEXIUM [Concomitant]
  8. PLAVIX [Concomitant]
  9. VYTORIN [Concomitant]
  10. ATIVAN [Concomitant]
  11. TOPROL-XL [Concomitant]
  12. LASIX [Concomitant]
  13. KLOR-CON [Concomitant]
  14. METFORMIN HCL [Concomitant]
  15. VITAMIN B12 [Concomitant]
  16. NITROGLYCERIN [Concomitant]
  17. FOLTX (CYANOCOBALAMIN, FOLIC ACID, PYRIDOXINE) [Concomitant]
  18. NAMENDA [Concomitant]

REACTIONS (2)
  - BLOOD GLUCOSE INCREASED [None]
  - DERMATITIS CONTACT [None]
